FAERS Safety Report 14142914 (Version 1)
Quarter: 2017Q4

REPORT INFORMATION
  Report Type: Spontaneous
  Country: TR (occurrence: TR)
  Receive Date: 20171030
  Receipt Date: 20171030
  Transmission Date: 20180321
  Serious: Yes (Other)
  Sender: FDA-Public Use
  Company Number: TR-ASTELLAS-2017US043754

PATIENT
  Age: 59 Year
  Sex: Male

DRUGS (6)
  1. TACROLIMUS. [Suspect]
     Active Substance: TACROLIMUS
     Indication: RENAL TRANSPLANT
     Dosage: UNK UNK, UNKNOWN FREQ.
     Route: 065
  2. HEPARIN [Suspect]
     Active Substance: HEPARIN SODIUM
     Indication: VENOUS STENT INSERTION
     Dosage: UNK UNK, UNKNOWN FREQ.
     Route: 065
  3. MYCOPHENOLATE MOFETIL. [Concomitant]
     Active Substance: MYCOPHENOLATE MOFETIL
     Indication: RENAL TRANSPLANT
     Dosage: UNK, UNKNOWN FREQ.
     Route: 065
  4. TACROLIMUS. [Suspect]
     Active Substance: TACROLIMUS
     Dosage: UNK UNK, UNKNOWN FREQ.
     Route: 065
  5. COTRIMOXAZOLE [Suspect]
     Active Substance: SULFAMETHOXAZOLE\TRIMETHOPRIM
     Indication: PROPHYLAXIS
     Dosage: UNK UNK, UNKNOWN FREQ.
     Route: 065
  6. METHYLPREDNISOLON                  /00049601/ [Concomitant]
     Active Substance: METHYLPREDNISOLONE
     Indication: RENAL TRANSPLANT
     Dosage: UNK, UNKNOWN FREQ.
     Route: 065

REACTIONS (2)
  - Immunosuppressant drug level increased [Recovered/Resolved]
  - Renal tubular acidosis [Recovering/Resolving]
